FAERS Safety Report 9174231 (Version 2)
Quarter: 2013Q2

REPORT INFORMATION
  Report Type: Report from Study
  Country: JP (occurrence: JP)
  Receive Date: 20130320
  Receipt Date: 20130422
  Transmission Date: 20140414
  Serious: Yes (Hospitalization, Other)
  Sender: FDA-Public Use
  Company Number: PHHY2012JP119484

PATIENT
  Age: 62 Year
  Sex: Male
  Weight: 48 kg

DRUGS (11)
  1. AFINITOR [Suspect]
     Indication: PANCREATIC NEUROENDOCRINE TUMOUR
     Dosage: 10 MG, DAILY
     Route: 048
     Dates: start: 20020117, end: 20120131
  2. AFINITOR [Suspect]
     Dosage: 5 MG, DAILY
     Route: 048
     Dates: start: 20120201, end: 20120301
  3. AFINITOR [Suspect]
     Dosage: 5 MG, DAILY
     Route: 048
     Dates: start: 20120302, end: 20120607
  4. AFINITOR [Suspect]
     Dosage: 10 MG, DAILY
     Route: 048
     Dates: start: 20120302, end: 20120607
  5. AFINITOR [Suspect]
     Dosage: 10 MG, DAILY
     Route: 048
     Dates: start: 20120608, end: 20120729
  6. SANDOSTATIN LAR [Concomitant]
     Indication: PANCREATIC NEUROENDOCRINE TUMOUR
     Dosage: 30 MG
     Route: 030
     Dates: start: 20110705, end: 20120120
  7. ZOMETA [Concomitant]
     Indication: OSTEOMA
     Dates: start: 20110916
  8. AZUNOL [Concomitant]
     Indication: PROPHYLAXIS
     Dosage: 12 MG
     Route: 048
     Dates: start: 20120117, end: 20120510
  9. REBAMIPIDE [Concomitant]
     Dosage: 300 MG
     Route: 048
  10. LENDORMIN [Concomitant]
     Dosage: 0.25 MG, UNK
     Route: 048
  11. MAGLAX [Concomitant]
     Dosage: 990 MG
     Route: 048
     Dates: start: 20120201, end: 20120208

REACTIONS (8)
  - Gamma-glutamyltransferase increased [Unknown]
  - Blood alkaline phosphatase increased [Unknown]
  - Alanine aminotransferase increased [Unknown]
  - Blood glucose increased [Unknown]
  - Pancreatic neuroendocrine tumour [Unknown]
  - Malignant neoplasm progression [Unknown]
  - Stomatitis [Recovered/Resolved]
  - Platelet count decreased [Recovering/Resolving]
